FAERS Safety Report 18683070 (Version 2)
Quarter: 2021Q1

REPORT INFORMATION
  Report Type: Spontaneous
  Country: US (occurrence: US)
  Receive Date: 20201230
  Receipt Date: 20210104
  Transmission Date: 20210419
  Serious: No
  Sender: FDA-Public Use
  Company Number: US-ELI_LILLY_AND_COMPANY-US202012013387

PATIENT
  Age: 57 Year
  Sex: Male

DRUGS (2)
  1. BASAGLAR [Suspect]
     Active Substance: INSULIN GLARGINE
     Indication: PRODUCT USED FOR UNKNOWN INDICATION
     Dosage: 15?22 U, UNKNOWN
     Route: 065
     Dates: start: 20201218
  2. JANUVIA [Concomitant]
     Active Substance: SITAGLIPTIN PHOSPHATE
     Indication: DIABETES MELLITUS

REACTIONS (3)
  - Glycosylated haemoglobin increased [Unknown]
  - Incorrect dose administered [Unknown]
  - Blood glucose increased [Unknown]

NARRATIVE: CASE EVENT DATE: 20201218
